FAERS Safety Report 4440230-6 (Version None)
Quarter: 2004Q3

REPORT INFORMATION
  Report Type: 
  Country: None (occurrence: None)
  Receive Date: 20040831
  Receipt Date: 20040831
  Transmission Date: 20050211
  Serious: Yes (Other)
  Sender: FDA-Public Use
  Company Number: None

PATIENT
  Sex: Male
  Weight: 80.2867 kg

DRUGS (2)
  1. NICOTROL [Suspect]
     Indication: EX-SMOKER
     Dosage: ONE 10 MG PATCH
     Route: 062
     Dates: start: 20040820
  2. NICOTROL NICOTINE TRANSDERMAL PATCH 15MG [Concomitant]

REACTIONS (3)
  - APPLICATION SITE REACTION [None]
  - FEELING HOT [None]
  - MYALGIA [None]
